FAERS Safety Report 17597625 (Version 1)
Quarter: 2020Q1

REPORT INFORMATION
  Report Type: Spontaneous
  Country: US (occurrence: US)
  Receive Date: 20200326
  Receipt Date: 20200326
  Transmission Date: 20200409
  Serious: Yes (Other)
  Sender: FDA-Public Use
  Company Number: None

PATIENT
  Age: 28 Year
  Sex: Female
  Weight: 156.49 kg

DRUGS (1)
  1. LEVOTHYROXINE 88MCG [Suspect]
     Active Substance: LEVOTHYROXINE

REACTIONS (3)
  - Swelling face [None]
  - Skin tightness [None]
  - Peripheral swelling [None]
